FAERS Safety Report 4933118-5 (Version None)
Quarter: 2006Q1

REPORT INFORMATION
  Report Type: 
  Country: None (occurrence: None)
  Receive Date: 20060306
  Receipt Date: 20060228
  Transmission Date: 20060701
  Serious: Yes (Life-Threatening)
  Sender: FDA-Public Use
  Company Number: 2006AC00354

PATIENT
  Age: 44 Year
  Sex: Male

DRUGS (11)
  1. LOSEC [Suspect]
     Indication: GASTRITIS
     Route: 048
  2. LOSEC [Suspect]
     Indication: HELICOBACTER INFECTION
     Route: 048
  3. LOSEC [Suspect]
     Route: 048
  4. LOSEC [Suspect]
     Route: 048
  5. LOSEC [Suspect]
     Dosage: COMPLETED 14 DAYS OF TREATMENT
     Route: 048
  6. LOSEC [Suspect]
     Dosage: COMPLETED 14 DAYS OF TREATMENT
     Route: 048
  7. AMOXICILLIN [Suspect]
     Indication: GASTRITIS
  8. AMOXICILLIN [Suspect]
     Indication: HELICOBACTER INFECTION
  9. CLARITHROMYCIN [Suspect]
     Indication: GASTRITIS
  10. CLARITHROMYCIN [Suspect]
     Indication: HELICOBACTER INFECTION
  11. MEDICINALPRODUCT NOT SPECIFIED BY SENDER [Concomitant]

REACTIONS (7)
  - ANAPHYLACTIC REACTION [None]
  - ANGIONEUROTIC OEDEMA [None]
  - DIZZINESS [None]
  - ERYTHEMA [None]
  - HYPOTENSION [None]
  - PRURITUS GENERALISED [None]
  - URTICARIA [None]
